FAERS Safety Report 8529828 (Version 2)
Quarter: 2013Q1

REPORT INFORMATION
  Report Type: Spontaneous
  Country: US (occurrence: US)
  Receive Date: 20120425
  Receipt Date: 20130131
  Transmission Date: 20140127
  Serious: No
  Sender: FDA-Public Use
  Company Number: US-BIOGENIDEC-2012BI013575

PATIENT
  Sex: Female

DRUGS (1)
  1. TYSABRI [Suspect]
     Indication: MULTIPLE SCLEROSIS
     Route: 042
     Dates: start: 20120123

REACTIONS (7)
  - Pain in extremity [Recovered/Resolved]
  - Muscular weakness [Recovered/Resolved]
  - Myalgia [Not Recovered/Not Resolved]
  - Fall [Recovered/Resolved]
  - Arthralgia [Recovered/Resolved]
  - Fatigue [Not Recovered/Not Resolved]
  - Multiple sclerosis relapse [Recovered/Resolved]
